FAERS Safety Report 14649976 (Version 2)
Quarter: 2018Q2

REPORT INFORMATION
  Report Type: Spontaneous
  Country: GB (occurrence: GB)
  Receive Date: 20180316
  Receipt Date: 20180425
  Transmission Date: 20180711
  Serious: Yes (Other)
  Sender: FDA-Public Use
  Company Number: GB-PFIZER INC-2018101843

PATIENT
  Age: 49 Year
  Sex: Female
  Weight: 118 kg

DRUGS (9)
  1. ROCURONIUM BROMIDE. [Suspect]
     Active Substance: ROCURONIUM BROMIDE
     Dosage: UNK
     Dates: start: 20171116
  2. ATORVASTATIN [Concomitant]
     Active Substance: ATORVASTATIN
     Dosage: 1 DF, 1X/DAY
     Dates: start: 20170810, end: 20170825
  3. SALBUTAMOL [Concomitant]
     Active Substance: ALBUTEROL
     Dosage: 2 DF, UNK AS NECESSARY
     Route: 055
     Dates: start: 20170707
  4. VENSIR [Concomitant]
     Active Substance: VENLAFAXINE HYDROCHLORIDE
     Dosage: 2 DF, 1X/DAY
     Dates: start: 20170710
  5. ASPIRIN /00002701/ [Concomitant]
     Active Substance: ASPIRIN
     Dosage: 1 DF, 1X/DAY, MORNING
     Dates: start: 20170707, end: 20170825
  6. ZAPAIN [Concomitant]
     Active Substance: ACETAMINOPHEN\CODEINE PHOSPHATE
     Dosage: TAKE 1 OR 2 4 TIMES/DAY, WHEN REQUIRED
     Dates: start: 20170707
  7. GABAPENTIN. [Concomitant]
     Active Substance: GABAPENTIN
     Dosage: 3 DF, 1X/DAY
     Dates: start: 20170707
  8. TIOTROPIUM [Concomitant]
     Active Substance: TIOTROPIUM
     Dosage: 2 DF, 1X/DAY
     Route: 055
     Dates: start: 20170707
  9. CARBOCISTEINE [Concomitant]
     Active Substance: CARBOCYSTEINE
     Dosage: 4 DF, 1X/DAY
     Dates: start: 20170707

REACTIONS (2)
  - Flushing [Unknown]
  - Hypersensitivity [Unknown]

NARRATIVE: CASE EVENT DATE: 20171116
